FAERS Safety Report 9198790 (Version 1)
Quarter: 2013Q1

REPORT INFORMATION
  Report Type: Spontaneous
  Country: GB (occurrence: GB)
  Receive Date: 20130329
  Receipt Date: 20130329
  Transmission Date: 20140127
  Serious: Yes (Other)
  Sender: FDA-Public Use
  Company Number: GB-PFIZER INC-2013097252

PATIENT
  Age: 60 Year
  Sex: Female

DRUGS (8)
  1. DALTEPARIN SODIUM [Suspect]
     Indication: PULMONARY EMBOLISM
     Dosage: 12500 UNITS
     Route: 058
     Dates: start: 20130302, end: 20130305
  2. DALTEPARIN SODIUM [Suspect]
     Dosage: 5000 IU, 1X/DAY
     Route: 058
     Dates: start: 20130306, end: 20130307
  3. DALTEPARIN SODIUM [Suspect]
     Dosage: 5000 IU, 1X/DAY
     Route: 058
     Dates: start: 20130311, end: 20130311
  4. CLOPIDOGREL [Concomitant]
  5. LOSARTAN [Concomitant]
  6. SIMVASTATIN [Concomitant]
  7. ESOMEPRAZOLE [Concomitant]
  8. CITALOPRAM [Concomitant]

REACTIONS (6)
  - Skin necrosis [Not Recovered/Not Resolved]
  - Pain of skin [Unknown]
  - Erythema [Unknown]
  - Skin warm [Unknown]
  - Blister [Unknown]
  - Platelet count decreased [Unknown]
